FAERS Safety Report 20368918 (Version 1)
Quarter: 2022Q1

REPORT INFORMATION
  Report Type: Spontaneous
  Country: AU (occurrence: AU)
  Receive Date: 20220124
  Receipt Date: 20220124
  Transmission Date: 20220423
  Serious: Yes (Other)
  Sender: FDA-Public Use
  Company Number: AU-ABBVIE-22K-008-4245955-00

PATIENT
  Sex: Female

DRUGS (9)
  1. ISOFLURANE [Suspect]
     Active Substance: ISOFLURANE
     Indication: Maternal exposure timing unspecified
     Route: 064
  2. BUDESONIDE [Suspect]
     Active Substance: BUDESONIDE
     Indication: Maternal exposure timing unspecified
     Route: 064
  3. PROPOFOL [Suspect]
     Active Substance: PROPOFOL
     Indication: Maternal exposure timing unspecified
     Route: 064
  4. METARAMINOL [Suspect]
     Active Substance: METARAMINOL
     Indication: Maternal exposure timing unspecified
     Route: 064
  5. ALBUTEROL [Suspect]
     Active Substance: ALBUTEROL
     Indication: Maternal exposure timing unspecified
     Route: 064
  6. RANITIDINE [Suspect]
     Active Substance: RANITIDINE
     Indication: Maternal exposure timing unspecified
     Route: 064
  7. SUCCINYLCHOLINE CHLORIDE DIHYDRATE [Suspect]
     Active Substance: SUCCINYLCHOLINE CHLORIDE DIHYDRATE
     Indication: Maternal exposure timing unspecified
     Route: 064
  8. MIDAZOLAM [Suspect]
     Active Substance: MIDAZOLAM
     Indication: Maternal exposure timing unspecified
     Route: 064
  9. FENTANYL [Suspect]
     Active Substance: FENTANYL
     Indication: Maternal exposure timing unspecified
     Route: 064

REACTIONS (3)
  - Premature baby [Unknown]
  - Foetal exposure during pregnancy [Unknown]
  - Childhood depression [Unknown]

NARRATIVE: CASE EVENT DATE: 20210115
